FAERS Safety Report 7530658-X (Version None)
Quarter: 2011Q2

REPORT INFORMATION
  Report Type: 
  Country: None (occurrence: None)
  Receive Date: 20110607
  Receipt Date: 20110604
  Transmission Date: 20111010
  Serious: Yes (Life-Threatening, Hospitalization, Other)
  Sender: FDA-Public Use
  Company Number: US-B.I. PHARMACEUTICALS,INC./RIDGEFIELD-2010-BP-05806BP

PATIENT
  Age: 74 Year
  Sex: Female

DRUGS (9)
  1. LISINOPRIL [Concomitant]
     Indication: HYPERTENSION
     Dosage: 15 MG
     Route: 048
     Dates: start: 20090101
  2. MEDICATION NOT FURTHER SPECIFIED [Concomitant]
     Indication: GASTROOESOPHAGEAL REFLUX DISEASE
  3. COMBIVENT [Suspect]
     Indication: CHRONIC OBSTRUCTIVE PULMONARY DISEASE
     Dosage: 4 PUF
     Route: 055
     Dates: start: 20100401
  4. LEVOTHYROXINE SODIUM [Concomitant]
     Indication: THYROID DISORDER
     Dosage: 100 MCG
     Route: 048
     Dates: start: 19810101
  5. COMBIVENT [Suspect]
     Indication: ASTHMA
     Dosage: 8 PUF
     Route: 055
     Dates: start: 20100101
  6. LASIX [Concomitant]
     Indication: HYPERTENSION
     Dosage: 20 MG
     Route: 048
     Dates: start: 20100101
  7. COMBIVENT [Suspect]
     Indication: DYSPNOEA
     Route: 055
     Dates: end: 20100401
  8. CARVEDILOL [Concomitant]
     Indication: HYPERTENSION
     Dosage: 12.5 MG
     Route: 048
     Dates: start: 20090101
  9. LASIX [Concomitant]
     Indication: FLUID RETENTION

REACTIONS (17)
  - DYSURIA [None]
  - DEHYDRATION [None]
  - MUSCULOSKELETAL PAIN [None]
  - APPARENT DEATH [None]
  - DYSPNOEA [None]
  - WEIGHT DECREASED [None]
  - HYPOAESTHESIA [None]
  - ANAEMIA [None]
  - PULMONARY HYPERTENSION [None]
  - CONSTIPATION [None]
  - DIZZINESS [None]
  - LOSS OF CONSCIOUSNESS [None]
  - PNEUMONIA [None]
  - INCREASED UPPER AIRWAY SECRETION [None]
  - ROAD TRAFFIC ACCIDENT [None]
  - PAIN IN EXTREMITY [None]
  - AMNESIA [None]
